FAERS Safety Report 25527531 (Version 1)
Quarter: 2025Q3

REPORT INFORMATION
  Report Type: Spontaneous
  Country: EU (occurrence: EU)
  Receive Date: 20250708
  Receipt Date: 20250708
  Transmission Date: 20251021
  Serious: Yes (Other)
  Sender: STRIDES
  Company Number: EU-STRIDES ARCOLAB LIMITED-2025SP008245

PATIENT
  Age: 50 Year
  Sex: Male

DRUGS (4)
  1. PREDNISOLONE [Suspect]
     Active Substance: PREDNISOLONE
     Indication: Acute febrile neutrophilic dermatosis
     Route: 065
  2. COLCHICINE [Suspect]
     Active Substance: COLCHICINE
     Indication: Acute febrile neutrophilic dermatosis
     Route: 065
     Dates: start: 2022
  3. METHOTREXATE [Suspect]
     Active Substance: METHOTREXATE
     Indication: Acute febrile neutrophilic dermatosis
     Route: 065
     Dates: start: 202304
  4. DAPSONE [Concomitant]
     Active Substance: DAPSONE
     Indication: Acute febrile neutrophilic dermatosis
     Route: 065

REACTIONS (4)
  - Central serous chorioretinopathy [Unknown]
  - Therapy non-responder [Unknown]
  - Drug effective for unapproved indication [Unknown]
  - Off label use [Unknown]

NARRATIVE: CASE EVENT DATE: 20220101
